FAERS Safety Report 4305412-2 (Version None)
Quarter: 2004Q1

REPORT INFORMATION
  Report Type: 
  Country: None (occurrence: None)
  Receive Date: 20040226
  Receipt Date: 20031028
  Transmission Date: 20041129
  Serious: No
  Sender: FDA-Public Use
  Company Number: US-BRISTOL-MYERS SQUIBB COMPANY-12420881

PATIENT
  Age: 65 Year
  Sex: Female
  Weight: 100 kg

DRUGS (9)
  1. TAXOL [Suspect]
     Indication: OVARIAN CANCER
     Route: 042
     Dates: start: 20031023, end: 20031023
  2. KYTRIL [Concomitant]
     Indication: PREMEDICATION
     Route: 042
  3. BENADRYL [Concomitant]
     Indication: PREMEDICATION
     Route: 042
  4. DECADRON [Concomitant]
     Indication: PREMEDICATION
     Route: 048
  5. COUMADIN [Concomitant]
  6. LANOXIN [Concomitant]
  7. LIPITOR [Concomitant]
  8. GLUCOPHAGE [Concomitant]
  9. SYNTHROID [Concomitant]

REACTIONS (1)
  - EXTRAVASATION [None]
